FAERS Safety Report 7398056-X (Version None)
Quarter: 2011Q2

REPORT INFORMATION
  Report Type: 
  Country: None (occurrence: None)
  Receive Date: 20110406
  Receipt Date: 20110323
  Transmission Date: 20111010
  Serious: Yes (Other)
  Sender: FDA-Public Use
  Company Number: IL-PURDUE-2011676

PATIENT
  Age: 24 Year
  Sex: Male

DRUGS (1)
  1. POVIDONE IODINE TOPICAL SOLUTION  (SIMILAR TO ANDA 10-288) [Suspect]
     Indication: INFECTION PROPHYLAXIS
     Dosage: UNK, UNK
     Route: 061

REACTIONS (1)
  - CHEMICAL BURN OF SKIN [None]
